FAERS Safety Report 14964560 (Version 4)
Quarter: 2018Q4

REPORT INFORMATION
  Report Type: Report from Study
  Country: US (occurrence: US)
  Receive Date: 20180601
  Receipt Date: 20181106
  Transmission Date: 20190204
  Serious: Yes (Hospitalization, Other)
  Sender: FDA-Public Use
  Company Number: US-ASTRAZENECA-2016SE59756

PATIENT
  Age: 69 Year
  Sex: Male
  Weight: 113.4 kg

DRUGS (20)
  1. BRILINTA [Suspect]
     Active Substance: TICAGRELOR
     Indication: ARTERIAL CATHETERISATION
     Route: 048
     Dates: start: 20180801
  2. BRILINTA [Suspect]
     Active Substance: TICAGRELOR
     Indication: STENT PLACEMENT
     Route: 048
     Dates: start: 20160430
  3. BRILINTA [Suspect]
     Active Substance: TICAGRELOR
     Indication: ARTERIAL CATHETERISATION
     Route: 048
     Dates: start: 201605, end: 201705
  4. BRILINTA [Suspect]
     Active Substance: TICAGRELOR
     Indication: STENT PLACEMENT
     Route: 048
     Dates: start: 201705, end: 201808
  5. BRILINTA [Suspect]
     Active Substance: TICAGRELOR
     Indication: ARTERIAL CATHETERISATION
     Route: 048
     Dates: start: 201504
  6. BRILINTA [Suspect]
     Active Substance: TICAGRELOR
     Indication: ARTERIAL CATHETERISATION
     Route: 048
     Dates: start: 20160430
  7. BRILINTA [Suspect]
     Active Substance: TICAGRELOR
     Indication: STENT PLACEMENT
     Route: 048
     Dates: start: 20180801
  8. METOPROLOL TARTRATE. [Suspect]
     Active Substance: METOPROLOL TARTRATE
     Indication: CARDIAC DISORDER
     Dosage: 12.5MG UNKNOWN
     Route: 048
     Dates: start: 201605, end: 201606
  9. CANASA [Concomitant]
     Active Substance: MESALAMINE
     Indication: HAEMORRHAGE
     Dosage: 1000.0MG UNKNOWN
     Route: 054
  10. ATORVASTATIN [Concomitant]
     Active Substance: ATORVASTATIN
     Indication: BLOOD CHOLESTEROL ABNORMAL
     Route: 048
  11. CARVEDILOL. [Concomitant]
     Active Substance: CARVEDILOL
     Indication: CARDIAC DISORDER
     Route: 048
     Dates: start: 201604
  12. BRILINTA [Suspect]
     Active Substance: TICAGRELOR
     Indication: STENT PLACEMENT
     Route: 048
     Dates: start: 201605, end: 201705
  13. BABY ASPIRIN [Concomitant]
     Active Substance: ASPIRIN
     Indication: SUPPLEMENTATION THERAPY
     Route: 048
     Dates: start: 2008
  14. BRILINTA [Suspect]
     Active Substance: TICAGRELOR
     Indication: STENT PLACEMENT
     Route: 048
  15. BRILINTA [Suspect]
     Active Substance: TICAGRELOR
     Indication: ARTERIAL CATHETERISATION
     Route: 048
  16. ATORVASTATIN [Concomitant]
     Active Substance: ATORVASTATIN
     Indication: BLOOD CHOLESTEROL ABNORMAL
     Route: 048
  17. PLAVIX [Concomitant]
     Active Substance: CLOPIDOGREL BISULFATE
     Indication: STENT PLACEMENT
     Dates: end: 201504
  18. BRILINTA [Suspect]
     Active Substance: TICAGRELOR
     Indication: STENT PLACEMENT
     Route: 048
     Dates: start: 201504
  19. BRILINTA [Suspect]
     Active Substance: TICAGRELOR
     Indication: ARTERIAL CATHETERISATION
     Route: 048
     Dates: start: 201705, end: 201808
  20. PANTOPRAZOLE SODIUM. [Concomitant]
     Active Substance: PANTOPRAZOLE SODIUM
     Indication: BARRETT^S OESOPHAGUS
     Route: 048
     Dates: start: 2010

REACTIONS (29)
  - Complication associated with device [Unknown]
  - Arterial disorder [Unknown]
  - Bleeding time prolonged [Not Recovered/Not Resolved]
  - Hypoaesthesia [Unknown]
  - Wound [Unknown]
  - Rash vesicular [Not Recovered/Not Resolved]
  - Product dose omission [Recovered/Resolved]
  - Asthenia [Unknown]
  - Cardiac disorder [Unknown]
  - Coronary artery occlusion [Unknown]
  - Dyspnoea [Not Recovered/Not Resolved]
  - Blood glucose increased [Unknown]
  - Large intestinal haemorrhage [Not Recovered/Not Resolved]
  - Carpal tunnel syndrome [Not Recovered/Not Resolved]
  - Dermatitis allergic [Recovering/Resolving]
  - Aortic aneurysm [Unknown]
  - Pain in extremity [Unknown]
  - Cardiac failure congestive [Unknown]
  - Haemorrhage [Unknown]
  - Chest pain [Unknown]
  - Hyperhidrosis [Unknown]
  - Dizziness [Unknown]
  - Bradycardia [Recovered/Resolved]
  - Skin lesion [Not Recovered/Not Resolved]
  - Lung disorder [Unknown]
  - Ventricular extrasystoles [Unknown]
  - Dry skin [Unknown]
  - Diverticulitis [Not Recovered/Not Resolved]
  - Pleural effusion [Unknown]

NARRATIVE: CASE EVENT DATE: 2016
